FAERS Safety Report 19119326 (Version 1)
Quarter: 2021Q2

REPORT INFORMATION
  Report Type: Spontaneous
  Country: US (occurrence: US)
  Receive Date: 20210411
  Receipt Date: 20210411
  Transmission Date: 20210717
  Serious: No
  Sender: FDA-Public Use
  Company Number: US-ASTRAZENECA-2021A248281

PATIENT
  Age: 2478 Week
  Sex: Female
  Weight: 127 kg

DRUGS (3)
  1. ALEVE [Concomitant]
     Active Substance: NAPROXEN SODIUM
  2. FASENRA [Suspect]
     Active Substance: BENRALIZUMAB
     Indication: ASTHMA
     Route: 058
     Dates: start: 20201123
  3. TYLENOL [Concomitant]
     Active Substance: ACETAMINOPHEN

REACTIONS (5)
  - Migraine [Unknown]
  - Erythema [Recovered/Resolved]
  - Chromatopsia [Recovered/Resolved]
  - Headache [Unknown]
  - Photosensitivity reaction [Recovered/Resolved]

NARRATIVE: CASE EVENT DATE: 20210315
